FAERS Safety Report 5478332-8 (Version None)
Quarter: 2007Q4

REPORT INFORMATION
  Report Type: 
  Country: None (occurrence: None)
  Receive Date: 20071005
  Receipt Date: 20070924
  Transmission Date: 20080405
  Serious: Yes (Hospitalization)
  Sender: FDA-Public Use
  Company Number: US-AMGEN-STX244867

PATIENT
  Sex: Female

DRUGS (1)
  1. ENBREL [Suspect]
     Indication: RHEUMATOID ARTHRITIS
     Route: 058
     Dates: start: 20031027

REACTIONS (9)
  - ASTHENIA [None]
  - CARDIAC FLUTTER [None]
  - DIZZINESS [None]
  - HYPOAESTHESIA [None]
  - KNEE ARTHROPLASTY [None]
  - NERVOUSNESS [None]
  - PAIN [None]
  - PARAESTHESIA [None]
  - VISUAL DISTURBANCE [None]
